FAERS Safety Report 9495154 (Version 2)
Quarter: 2013Q4

REPORT INFORMATION
  Report Type: Report from Study
  Country: JP (occurrence: JP)
  Receive Date: 20130903
  Receipt Date: 20131009
  Transmission Date: 20140711
  Serious: No
  Sender: FDA-Public Use
  Company Number: JP-UCBSA-096105

PATIENT
  Age: 22 Year
  Sex: Female

DRUGS (2)
  1. E KEPPRA [Suspect]
     Indication: COMPLEX PARTIAL SEIZURES
     Route: 048
     Dates: start: 20130306, end: 20130403
  2. CARBAMAZEPINE [Concomitant]
     Indication: EPILEPSY
     Dosage: 300 MG DAILY
     Route: 048

REACTIONS (3)
  - Agitation [Unknown]
  - Delusion [Unknown]
  - Drug ineffective [Recovered/Resolved]
